FAERS Safety Report 22278540 (Version 2)
Quarter: 2023Q2

REPORT INFORMATION
  Report Type: Spontaneous
  Country: US (occurrence: US)
  Receive Date: 20230503
  Receipt Date: 20230526
  Transmission Date: 20230722
  Serious: Yes (Other)
  Sender: FDA-Public Use
  Company Number: US-Hikma Pharmaceuticals USA Inc.-US-H14001-23-01319

PATIENT
  Sex: Male

DRUGS (1)
  1. PREDNISONE [Suspect]
     Active Substance: PREDNISONE
     Indication: Rash
     Dosage: BREAKING DOWN A 25 PILL DOSE OVER 4-5 DAYS
     Route: 048
     Dates: start: 2012, end: 2017

REACTIONS (3)
  - Hip deformity [Not Recovered/Not Resolved]
  - Arthralgia [Unknown]
  - Drug abuse [Recovered/Resolved]

NARRATIVE: CASE EVENT DATE: 20160101
